FAERS Safety Report 24203813 (Version 1)
Quarter: 2024Q3

REPORT INFORMATION
  Report Type: Spontaneous
  Country: US (occurrence: US)
  Receive Date: 20240813
  Receipt Date: 20240813
  Transmission Date: 20241017
  Serious: No
  Sender: ROCHE
  Company Number: US-ROCHE-10000054291

PATIENT
  Sex: Male

DRUGS (2)
  1. XOLAIR PFS [Suspect]
     Active Substance: OMALIZUMAB
     Indication: Asthma
     Dosage: 150MG/ML
     Route: 058
     Dates: start: 202405
  2. XOLAIR PFS [Suspect]
     Active Substance: OMALIZUMAB

REACTIONS (3)
  - Chronic obstructive pulmonary disease [Unknown]
  - Middle insomnia [Unknown]
  - Drug ineffective [Unknown]
